FAERS Safety Report 22100069 (Version 2)
Quarter: 2023Q1

REPORT INFORMATION
  Report Type: Spontaneous
  Country: AU (occurrence: AU)
  Receive Date: 20230315
  Receipt Date: 20230316
  Transmission Date: 20230418
  Serious: Yes (Life-Threatening, Hospitalization)
  Sender: FDA-Public Use
  Company Number: AU-BAUSCHBL-2023BNL002026

PATIENT
  Age: 56 Year
  Sex: Male

DRUGS (1)
  1. DEXAMETHASONE [Suspect]
     Active Substance: DEXAMETHASONE
     Indication: COVID-19
     Dosage: HIGH DOSE
     Route: 065

REACTIONS (3)
  - Rhinocerebral mucormycosis [Recovered/Resolved]
  - Mucormycosis [Recovered/Resolved]
  - Kidney infection [Recovered/Resolved]
